FAERS Safety Report 25382664 (Version 1)
Quarter: 2025Q2

REPORT INFORMATION
  Report Type: Spontaneous
  Country: US (occurrence: US)
  Receive Date: 20250601
  Receipt Date: 20250601
  Transmission Date: 20250717
  Serious: No
  Sender: ABBVIE
  Company Number: US-ABBVIE-6302624

PATIENT
  Sex: Male

DRUGS (3)
  1. RISANKIZUMAB [Suspect]
     Active Substance: RISANKIZUMAB
     Indication: Crohn^s disease
     Route: 058
  2. RISANKIZUMAB [Suspect]
     Active Substance: RISANKIZUMAB
     Route: 058
  3. RISANKIZUMAB [Suspect]
     Active Substance: RISANKIZUMAB
     Route: 058

REACTIONS (1)
  - Product temperature excursion issue [Unknown]
